FAERS Safety Report 10144171 (Version 1)
Quarter: 2014Q2

REPORT INFORMATION
  Report Type: Spontaneous
  Country: US (occurrence: US)
  Receive Date: 20140430
  Receipt Date: 20140430
  Transmission Date: 20141212
  Serious: Yes (Hospitalization, Other)
  Sender: FDA-Public Use
  Company Number: US-TEVA-478291USA

PATIENT
  Sex: Female

DRUGS (1)
  1. METRONIDAZOLE [Suspect]

REACTIONS (9)
  - Hypoaesthesia [Unknown]
  - Limb discomfort [Unknown]
  - Hypoaesthesia [Unknown]
  - Headache [Unknown]
  - Nausea [Unknown]
  - Visual impairment [Unknown]
  - Dizziness [Unknown]
  - Hypoacusis [Unknown]
  - Memory impairment [Unknown]
